FAERS Safety Report 18529139 (Version 1)
Quarter: 2020Q4

REPORT INFORMATION
  Report Type: Spontaneous
  Country: US (occurrence: US)
  Receive Date: 20201120
  Receipt Date: 20201120
  Transmission Date: 20210114
  Serious: Yes (Other)
  Sender: FDA-Public Use
  Company Number: US-PROCTER+GAMBLE-GS20127178

PATIENT

DRUGS (1)
  1. VICKS NYQUIL COUGH DM + CONGESTION, BERRY FLAVOR [DEXTROMETHORPHAN\DOXYLAMINE\PHENYLEPHRINE] [Suspect]
     Active Substance: DEXTROMETHORPHAN\DOXYLAMINE\PHENYLEPHRINE
     Route: 048

REACTIONS (1)
  - Coma [Unknown]
